FAERS Safety Report 4690401-9 (Version None)
Quarter: 2005Q2

REPORT INFORMATION
  Report Type: 
  Country: None (occurrence: None)
  Receive Date: 20050615
  Receipt Date: 20050608
  Transmission Date: 20051028
  Serious: Yes (Hospitalization)
  Sender: FDA-Public Use
  Company Number: 2005UW08878

PATIENT
  Age: 69 Year
  Sex: Female

DRUGS (14)
  1. IRESSA [Suspect]
     Indication: NON-SMALL CELL LUNG CANCER STAGE III
     Route: 048
  2. ALBUTEROL [Concomitant]
  3. DECADRON [Concomitant]
  4. BACTRIM [Concomitant]
  5. DURAGESIC-100 [Concomitant]
  6. DIFLUCAN [Concomitant]
  7. FOLATE [Concomitant]
  8. ATROVENT [Concomitant]
  9. NABUMETONE [Concomitant]
  10. NABUMETINE [Concomitant]
  11. NYSTATIN [Concomitant]
  12. PROTONIX [Concomitant]
  13. ADVAIR [Concomitant]
  14. ALDACTONE [Concomitant]

REACTIONS (6)
  - ACCIDENTAL OVERDOSE [None]
  - CHRONIC OBSTRUCTIVE PULMONARY DISEASE [None]
  - DEEP VEIN THROMBOSIS [None]
  - GENERAL PHYSICAL CONDITION ABNORMAL [None]
  - HYPOXIA [None]
  - PNEUMONITIS [None]
